FAERS Safety Report 25298722 (Version 4)
Quarter: 2025Q2

REPORT INFORMATION
  Report Type: Report from Study
  Country: US (occurrence: US)
  Receive Date: 20250512
  Receipt Date: 20250620
  Transmission Date: 20250717
  Serious: No
  Sender: ACADIA PHARMACEUTICALS
  Company Number: US-ACADIA PHARMACEUTICALS INC.-ACA-2025-TRF-005435

PATIENT
  Age: 20 Year
  Sex: Female
  Weight: 43.3 kg

DRUGS (37)
  1. DAYBUE [Suspect]
     Active Substance: TROFINETIDE
     Indication: Rett syndrome
     Dosage: 5 MILLILITER, BID
     Dates: start: 2023, end: 2024
  2. DAYBUE [Suspect]
     Active Substance: TROFINETIDE
     Dosage: 15 MILLILITER, BID
     Dates: start: 20250503
  3. DAYBUE [Suspect]
     Active Substance: TROFINETIDE
     Dosage: 5 MILLILITER, BID
  4. DAYBUE [Suspect]
     Active Substance: TROFINETIDE
     Dosage: 2.5 MILLILITER, BID
     Route: 048
  5. DAYBUE [Suspect]
     Active Substance: TROFINETIDE
  6. DAYBUE [Suspect]
     Active Substance: TROFINETIDE
     Dosage: 10 MILLILITER, BID
     Route: 048
  7. ALBUTEROL [Concomitant]
     Active Substance: ALBUTEROL
  8. ARTEMETHER [Concomitant]
     Active Substance: ARTEMETHER
     Dosage: 2 MILLIGRAM, BID
     Route: 048
  9. BACLOFEN [Concomitant]
     Active Substance: BACLOFEN
     Indication: Dystonia
     Dates: start: 2023
  10. BISACODYL [Concomitant]
     Active Substance: BISACODYL
  11. BUSPIRONE [Concomitant]
     Active Substance: BUSPIRONE HYDROCHLORIDE
  12. CALCIUM CARBONATE [Concomitant]
     Active Substance: CALCIUM CARBONATE
     Dosage: 1250 MG (500 MG ELEMENTAL) ? PO, TID
     Route: 048
  13. CLONIDINE [Concomitant]
     Active Substance: CLONIDINE
  14. CLORAZEPATE DIPOTASSIUM [Concomitant]
     Active Substance: CLORAZEPATE DIPOTASSIUM
     Route: 048
  15. DEPO-PROVERA [Concomitant]
     Active Substance: MEDROXYPROGESTERONE ACETATE
  16. DIAZEPAM [Concomitant]
     Active Substance: DIAZEPAM
     Route: 048
  17. Enfit enteral syringe/ EnFit NeoMed Enteral Syringe [Concomitant]
  18. ERYTHROMYCIN ETHYLSUCCINATE [Concomitant]
     Active Substance: ERYTHROMYCIN ETHYLSUCCINATE
  19. ESCITALOPRAM [Concomitant]
     Active Substance: ESCITALOPRAM OXALATE
  20. ESOMEPRAZOLE [Concomitant]
     Active Substance: ESOMEPRAZOLE
  21. FEXOFENADINE [Concomitant]
     Active Substance: FEXOFENADINE HYDROCHLORIDE
     Dosage: 30 MILLIGRAM, BID
     Route: 048
  22. GABAPENTIN [Concomitant]
     Active Substance: GABAPENTIN
     Dosage: PO, 300 MG (3 CAPSULES) TID
     Route: 048
  23. GLYCERIN ADULT [Concomitant]
     Active Substance: GLYCERIN
     Dosage: 7.5 ML, RECTALLY, QDAY PRN
     Route: 054
  24. HYOSCYAMINE [Concomitant]
     Active Substance: HYOSCYAMINE
  25. LACTULOSE [Concomitant]
     Active Substance: LACTULOSE
     Route: 048
  26. LIDOCAINE [Concomitant]
     Active Substance: LIDOCAINE
     Route: 062
  27. MELATONIN [Concomitant]
     Active Substance: MELATONIN
     Route: 048
  28. NAYZILAM [Concomitant]
     Active Substance: MIDAZOLAM
     Route: 045
  29. NYSTATIN [Concomitant]
     Active Substance: NYSTATIN
     Route: 061
  30. OLOPATADINE [Concomitant]
     Active Substance: OLOPATADINE
     Route: 045
  31. ONDANSETRON [Concomitant]
     Active Substance: ONDANSETRON
     Dosage: 4 MILLIGRAM BID PRN
  32. OXCARBAZEPINE [Concomitant]
     Active Substance: OXCARBAZEPINE
     Route: 048
  33. POLYETHYLENE GLYCOL 3350 [Concomitant]
     Active Substance: POLYETHYLENE GLYCOL 3350
     Dosage: 17 G POWDER (MIRALAX)	PG (PER GASTRIC)
  34. SENNA LEAF [Concomitant]
     Active Substance: SENNA LEAF
     Dosage: 8.8 MG/5 ML SYRUP PG 35.2 MILLIGRAM, QD
  35. SIMETHICONE (DIMETHICONE) [Concomitant]
     Active Substance: DIMETHICONE
  36. TRIHEXYPHENIDYL [Concomitant]
     Active Substance: TRIHEXYPHENIDYL
     Indication: Dystonia
  37. TRILEPTAL [Concomitant]
     Active Substance: OXCARBAZEPINE
     Indication: Partial seizures

REACTIONS (8)
  - Agitation [Unknown]
  - Heart rate increased [Not Recovered/Not Resolved]
  - Blood pressure increased [Not Recovered/Not Resolved]
  - Gastrointestinal disorder [Unknown]
  - Anxiety [Unknown]
  - Somnolence [Unknown]
  - Diarrhoea [Recovering/Resolving]
  - Underdose [Unknown]

NARRATIVE: CASE EVENT DATE: 20250503
